FAERS Safety Report 9788282 (Version 3)
Quarter: 2014Q1

REPORT INFORMATION
  Report Type: Spontaneous
  Country: AR (occurrence: AR)
  Receive Date: 20131230
  Receipt Date: 20140310
  Transmission Date: 20141002
  Serious: Yes (Other)
  Sender: FDA-Public Use
  Company Number: AR-AMGEN-ARGSP2013090799

PATIENT
  Age: 65 Year
  Sex: Female

DRUGS (2)
  1. ENBREL [Suspect]
     Indication: RHEUMATOID ARTHRITIS
     Dosage: 50 MG, WEEKLY
     Route: 065
     Dates: start: 20100825
  2. ATORVASTATIN [Concomitant]
     Dosage: UNK

REACTIONS (3)
  - Bunion [Recovered/Resolved]
  - Application site pain [Recovered/Resolved]
  - Injection site haemorrhage [Recovered/Resolved]
